FAERS Safety Report 4376153-0 (Version None)
Quarter: 2004Q2

REPORT INFORMATION
  Report Type: 
  Country: None (occurrence: None)
  Receive Date: 20040607
  Receipt Date: 20040521
  Transmission Date: 20050107
  Serious: Yes (Life-Threatening)
  Sender: FDA-Public Use
  Company Number: 04P-062-0262230-00

PATIENT
  Sex: Male

DRUGS (3)
  1. HUMIRA [Suspect]
     Dosage: 40 MG, SUBCUTANEOUS
     Route: 058
     Dates: start: 20040201
  2. INFLIXIMAB (INFLIXIMAB) (INFLIXIMAB) [Suspect]
     Dates: start: 20020901, end: 20040101
  3. METHOTREXATE SODIUM [Concomitant]

REACTIONS (1)
  - HYPERSENSITIVITY [None]
